FAERS Safety Report 25734353 (Version 1)
Quarter: 2025Q3

REPORT INFORMATION
  Report Type: Spontaneous
  Country: US (occurrence: None)
  Receive Date: 20250827
  Receipt Date: 20250827
  Transmission Date: 20251021
  Serious: Yes (Other)
  Sender: FDA-CTU
  Company Number: None

PATIENT
  Age: 66 Year
  Sex: Female

DRUGS (2)
  1. IBRANCE [Suspect]
     Active Substance: PALBOCICLIB
     Indication: Breast cancer female
     Dosage: 25MG ONCE DAILY FOR 21 DAYS ORAL ?
     Route: 048
  2. LETROZOLE [Suspect]
     Active Substance: LETROZOLE

REACTIONS (9)
  - Joint swelling [None]
  - Pain in extremity [None]
  - Pain in extremity [None]
  - Dyspnoea exertional [None]
  - Dizziness [None]
  - Diarrhoea [None]
  - Pollakiuria [None]
  - Insomnia [None]
  - Nausea [None]
